FAERS Safety Report 5765756-4 (Version None)
Quarter: 2008Q2

REPORT INFORMATION
  Report Type: 
  Country: None (occurrence: None)
  Receive Date: 20080530
  Receipt Date: 20070612
  Transmission Date: 20081010
  Serious: Yes (Hospitalization)
  Sender: FDA-Public Use
  Company Number: 014870

PATIENT
  Age: 50 Year
  Sex: Female
  Weight: 55.3 kg

DRUGS (2)
  1. MIRCETTE [Suspect]
     Indication: MIGRAINE
     Dosage: 1 TABLET, QD, ORAL
     Route: 048
     Dates: start: 20040901, end: 20070328
  2. CLARITIN [Concomitant]

REACTIONS (6)
  - BLOOD CHOLESTEROL INCREASED [None]
  - BLOOD TRIGLYCERIDES INCREASED [None]
  - CEREBROVASCULAR ACCIDENT [None]
  - DYSARTHRIA [None]
  - HEMIPARESIS [None]
  - HYPERTENSION [None]
